FAERS Safety Report 7339921-9 (Version None)
Quarter: 2011Q1

REPORT INFORMATION
  Report Type: 
  Country: None (occurrence: None)
  Receive Date: 20110309
  Receipt Date: 20110228
  Transmission Date: 20110831
  Serious: Yes (Hospitalization)
  Sender: FDA-Public Use
  Company Number: DE-ELI_LILLY_AND_COMPANY-DE201103000111

PATIENT
  Sex: Female

DRUGS (10)
  1. FORTEO [Suspect]
     Indication: OSTEOPOROSIS
     Route: 058
  2. RAMIPRIL [Concomitant]
     Dosage: 10 MG, UNK
  3. ARAVA [Concomitant]
     Dosage: 10 MG, UNK
  4. ASPIRIN [Concomitant]
     Dosage: 100 MG, UNK
     Dates: end: 20110201
  5. MESALAMINE [Concomitant]
  6. FERROUS SULFATE TAB [Concomitant]
  7. OMEPRAZOLE [Concomitant]
     Dosage: 20 MG, UNK
  8. VOLTAREN [Concomitant]
  9. ENBREL [Concomitant]
     Dosage: 40 MG, UNK
  10. NOVAMINSULFON [Concomitant]
     Dosage: 80 D/F, UNK

REACTIONS (2)
  - INFLAMMATORY BOWEL DISEASE [None]
  - MUSCLE SPASMS [None]
